FAERS Safety Report 8604198 (Version 2)
Quarter: 2012Q4

REPORT INFORMATION
  Report Type: 
  Country: US (occurrence: US)
  Receive Date: 20120608
  Receipt Date: 20121015
  Transmission Date: 20130627
  Serious: Yes (Hospitalization)
  Sender: FDA-Public Use
  Company Number: US-PFIZER INC-2012136516

PATIENT
  Age: 78 Year
  Sex: Male

DRUGS (11)
  1. SUTENT [Suspect]
     Indication: RENAL CANCER
     Dosage: 50 mg, 1x/day, cyclic (X 4 WKS, 2WKS off and repeated)
     Route: 048
     Dates: start: 20101129
  2. SUTENT [Suspect]
     Indication: RENAL CELL CARCINOMA
  3. CALTRATE [Concomitant]
     Dosage: UNK
  4. CENTRUM SILVER [Concomitant]
     Dosage: UNK
  5. CLONAZEPAM [Concomitant]
     Dosage: UNK
  6. DEPAKOTE [Concomitant]
     Dosage: UNK
  7. GAS-X [Concomitant]
     Dosage: UNK
  8. LAMICTAL [Concomitant]
     Dosage: UNK
  9. NAMENDA [Concomitant]
     Dosage: UNK
  10. METOPROLOL [Concomitant]
     Dosage: UNK
  11. PHENERGAN [Concomitant]
     Dosage: UNK

REACTIONS (2)
  - Hypertension [Unknown]
  - Hypertension [Recovered/Resolved]
